FAERS Safety Report 9445232 (Version 3)
Quarter: 2014Q1

REPORT INFORMATION
  Report Type: Spontaneous
  Country: FR (occurrence: FR)
  Receive Date: 20130807
  Receipt Date: 20140116
  Transmission Date: 20141002
  Serious: Yes (Hospitalization)
  Sender: FDA-Public Use
  Company Number: FR-GLAXOSMITHKLINE-B0911824A

PATIENT
  Age: 65 Year
  Sex: Female

DRUGS (9)
  1. ZELITREX [Suspect]
     Indication: PROPHYLAXIS
     Route: 048
     Dates: start: 20130527, end: 20130603
  2. AUGMENTIN [Suspect]
     Indication: PYREXIA
     Route: 048
     Dates: start: 20130525, end: 20130526
  3. BACTRIM [Suspect]
     Indication: PROPHYLAXIS
     Dates: start: 20130527, end: 20130603
  4. LEDERFOLINE [Suspect]
     Indication: PRODUCT USED FOR UNKNOWN INDICATION
     Dates: start: 20130527, end: 20130603
  5. CIFLOX [Suspect]
     Indication: PYREXIA
     Dates: start: 20130525, end: 20130526
  6. MELPHALAN [Suspect]
     Indication: PLASMA CELL MYELOMA
     Dates: start: 20130506
  7. VELCADE [Concomitant]
     Indication: PLASMA CELL MYELOMA
     Dates: start: 2013, end: 2013
  8. THALIDOMIDE [Concomitant]
     Indication: PLASMA CELL MYELOMA
     Dates: start: 2013, end: 2013
  9. DEXAMETHASONE [Concomitant]
     Indication: PLASMA CELL MYELOMA
     Dates: start: 2013, end: 2013

REACTIONS (13)
  - Drug reaction with eosinophilia and systemic symptoms [Recovered/Resolved]
  - Rash maculo-papular [Recovered/Resolved]
  - Pyrexia [Recovered/Resolved]
  - Face oedema [Recovered/Resolved]
  - Hepatitis [Recovered/Resolved]
  - Human herpesvirus 6 infection [Recovered/Resolved]
  - Histiocytosis haematophagic [Unknown]
  - Eosinophilia [Recovered/Resolved]
  - Renal failure acute [Not Recovered/Not Resolved]
  - Cholestasis [Unknown]
  - Pancytopenia [Not Recovered/Not Resolved]
  - Oedema peripheral [Not Recovered/Not Resolved]
  - Blood electrolytes abnormal [Recovered/Resolved]
